FAERS Safety Report 25237926 (Version 1)
Quarter: 2025Q2

REPORT INFORMATION
  Report Type: Spontaneous
  Country: US (occurrence: US)
  Receive Date: 20250425
  Receipt Date: 20250425
  Transmission Date: 20250716
  Serious: No
  Sender: AMNEAL
  Company Number: US-AMNEAL PHARMACEUTICALS-2024-AMRX-01584

PATIENT
  Age: 78 Year
  Sex: Male

DRUGS (3)
  1. WARFARIN SODIUM [Suspect]
     Active Substance: WARFARIN SODIUM
     Indication: Product used for unknown indication
     Route: 065
     Dates: end: 202404
  2. RELUGOLIX [Concomitant]
     Active Substance: RELUGOLIX
     Indication: Prostate cancer
     Dosage: 360 MG, QD
     Route: 048
     Dates: start: 20211027, end: 20211027
  3. RELUGOLIX [Concomitant]
     Active Substance: RELUGOLIX
     Dosage: 120 MG, QD
     Route: 048
     Dates: start: 20211028

REACTIONS (23)
  - Dry skin [Not Recovered/Not Resolved]
  - Memory impairment [Not Recovered/Not Resolved]
  - Testicular atrophy [Not Recovered/Not Resolved]
  - Dry eye [Not Recovered/Not Resolved]
  - Nasal dryness [Not Recovered/Not Resolved]
  - Body temperature fluctuation [Not Recovered/Not Resolved]
  - Brain fog [Unknown]
  - Hair growth abnormal [Unknown]
  - Disturbance in attention [Unknown]
  - Penile size reduced [Unknown]
  - Fatigue [Not Recovered/Not Resolved]
  - Hot flush [Not Recovered/Not Resolved]
  - Myalgia [Unknown]
  - Asthenia [Unknown]
  - International normalised ratio abnormal [Unknown]
  - Pollakiuria [Unknown]
  - Acrochordon [Unknown]
  - Ankle fracture [Unknown]
  - Fall [Unknown]
  - Gastrointestinal disorder [Unknown]
  - Dizziness [Unknown]
  - Contusion [Unknown]
  - Haemoglobin decreased [Unknown]

NARRATIVE: CASE EVENT DATE: 20211027
